FAERS Safety Report 15675636 (Version 1)
Quarter: 2018Q4

REPORT INFORMATION
  Report Type: Report from Study
  Country: ES (occurrence: ES)
  Receive Date: 20181130
  Receipt Date: 20181130
  Transmission Date: 20190205
  Serious: Yes (Other)
  Sender: FDA-Public Use
  Company Number: ES-SAKK-2018SA307842AA

PATIENT
  Sex: Male

DRUGS (3)
  1. INSULIN GLARGINE [Suspect]
     Active Substance: INSULIN GLARGINE
     Indication: TYPE 2 DIABETES MELLITUS
     Dosage: 30 IU, UNK
     Route: 058
  2. APIDRA [Concomitant]
     Active Substance: INSULIN GLULISINE
     Indication: TYPE 2 DIABETES MELLITUS
     Dosage: UNK UNK, UNK
     Route: 058
  3. ADO [Concomitant]
     Indication: TYPE 2 DIABETES MELLITUS
     Dosage: UNK UNK, UNK
     Route: 048

REACTIONS (1)
  - Respiratory tract infection [Recovered/Resolved]
